FAERS Safety Report 4978500-5 (Version None)
Quarter: 2006Q1

REPORT INFORMATION
  Report Type: 
  Country: None (occurrence: None)
  Receive Date: 20060227
  Receipt Date: 20050214
  Transmission Date: 20060701
  Serious: Yes (Life-Threatening, Disabling)
  Sender: FDA-Public Use
  Company Number: WAES 0502USA01844

PATIENT
  Age: 44 Year
  Sex: Female

DRUGS (6)
  1. ZOCOR [Suspect]
     Indication: BLOOD CHOLESTEROL INCREASED
     Dosage: PO
     Route: 048
     Dates: start: 20000101, end: 20030801
  2. TOPAMAX [Concomitant]
  3. VICODIN [Concomitant]
  4. ZOLOFT [Concomitant]
  5. INSULIN [Concomitant]
  6. TAMOXIFEN CITRATE [Concomitant]

REACTIONS (1)
  - MYOPATHY [None]
